FAERS Safety Report 8565946-1 (Version None)
Quarter: 2012Q3

REPORT INFORMATION
  Report Type: 
  Country: None (occurrence: None)
  Receive Date: 20120724
  Receipt Date: 20120711
  Transmission Date: 20120928
  Serious: Yes (Hospitalization, Other)
  Sender: FDA-Public Use
  Company Number: 2012P1050053

PATIENT
  Age: 5 Year
  Sex: Male

DRUGS (4)
  1. VALPROATE SODIUM [Suspect]
     Indication: CONVULSION
  2. VALPROATE SODIUM [Suspect]
     Indication: ABNORMAL BEHAVIOUR
  3. LEVETIRACETAM [Suspect]
  4. ARIPIPRAZOLE [Concomitant]

REACTIONS (7)
  - CHOREA [None]
  - PSYCHOMOTOR HYPERACTIVITY [None]
  - ATAXIA [None]
  - HYPERSEXUALITY [None]
  - AGGRESSION [None]
  - OPPOSITIONAL DEFIANT DISORDER [None]
  - MUSCULAR WEAKNESS [None]
